FAERS Safety Report 5197824-2 (Version None)
Quarter: 2006Q4

REPORT INFORMATION
  Report Type: 
  Country: None (occurrence: None)
  Receive Date: 20061228
  Receipt Date: 20061216
  Transmission Date: 20070319
  Serious: Yes (Hospitalization)
  Sender: FDA-Public Use
  Company Number: 007180

PATIENT
  Age: 38 Year
  Sex: Female

DRUGS (5)
  1. DIDANOSINE [Suspect]
     Indication: RETROVIRAL INFECTION
     Dosage: 400 MG, QD, ORAL
     Route: 048
  2. VIREAD [Suspect]
     Indication: RETROVIRAL INFECTION
     Dosage: 300 MG, QD, ORAL
     Route: 048
  3. KALETRA [Suspect]
     Indication: RETROVIRAL INFECTION
     Dosage: QD, ORAL
     Route: 048
  4. PRENATAL VITAMINS (ASCORBIC ACID, VITAMIN D NOS, MINERALS NOS, VITAMIN [Concomitant]
  5. FOLIC ACID [Concomitant]

REACTIONS (4)
  - DRUG EXPOSURE DURING PREGNANCY [None]
  - PNEUMONIA PNEUMOCOCCAL [None]
  - PREGNANCY [None]
  - PREMATURE LABOUR [None]
